FAERS Safety Report 9121559 (Version 2)
Quarter: 2014Q2

REPORT INFORMATION
  Report Type: Spontaneous
  Country: JP (occurrence: JP)
  Receive Date: 20130227
  Receipt Date: 20140403
  Transmission Date: 20141212
  Serious: Yes (Hospitalization, Other)
  Sender: FDA-Public Use
  Company Number: JP-009507513-1302JPN011103

PATIENT
  Age: 61 Year
  Sex: Male
  Weight: 68 kg

DRUGS (34)
  1. TEMODAL [Suspect]
     Indication: ANAPLASTIC ASTROCYTOMA
     Dosage: 75 MG/M2, QD
     Route: 048
     Dates: start: 20081214, end: 20090129
  2. TEMODAL [Suspect]
     Dosage: 150 MG/M2, QD
     Route: 048
     Dates: start: 20090228, end: 20090304
  3. TEMODAL [Suspect]
     Dosage: 200 MG/M2, QD
     Route: 048
     Dates: start: 20090502, end: 20090506
  4. TEMODAL [Suspect]
     Dosage: 200 MG/M2, QD
     Route: 048
     Dates: start: 20090530, end: 20090603
  5. TEMODAL [Suspect]
     Dosage: 200 MG/M2, QD
     Route: 048
     Dates: start: 20090704, end: 20090708
  6. TEMODAL [Suspect]
     Dosage: 200 MG/M2, QD
     Route: 048
     Dates: start: 20090801, end: 20090805
  7. TEMODAL [Suspect]
     Dosage: 200 MG/M2, QD
     Route: 048
     Dates: start: 20090829, end: 20090902
  8. TEMODAL [Suspect]
     Dosage: 200 MG/M2, QD
     Route: 048
     Dates: start: 20090926, end: 20090930
  9. TEMODAL [Suspect]
     Dosage: 200 MG/M2, QD
     Route: 048
     Dates: start: 20091024, end: 20091028
  10. TEMODAL [Suspect]
     Dosage: 200 MG/M2, QD
     Route: 048
     Dates: start: 20091121, end: 20091125
  11. TEMODAL [Suspect]
     Dosage: 200 MG/M2, QD
     Route: 048
     Dates: start: 20091219, end: 20091223
  12. TEMODAL [Suspect]
     Dosage: 200 MG/M2, QD
     Route: 048
     Dates: start: 20100116, end: 20100120
  13. TEMODAL [Suspect]
     Dosage: 200 MG/M2, QD
     Route: 048
     Dates: start: 20100213, end: 20100217
  14. TEMODAL [Suspect]
     Dosage: 200 MG/M2, QD
     Route: 048
     Dates: start: 20100320, end: 20100324
  15. TEMODAL [Suspect]
     Dosage: 200 MG/M2, QD
     Route: 048
     Dates: start: 20100424, end: 20100428
  16. TEMODAL [Suspect]
     Dosage: 200 MG/M2, QD
     Route: 048
     Dates: start: 20100529, end: 20100602
  17. TEMODAL [Suspect]
     Dosage: 200 MG/M2, QD
     Route: 048
     Dates: start: 20100702, end: 20100706
  18. TEMODAL [Suspect]
     Dosage: 200 MG/M2, QD
     Route: 048
     Dates: start: 20100828, end: 20100901
  19. TEMODAL [Suspect]
     Dosage: 200 MG/M2, QD
     Route: 048
     Dates: start: 20101003, end: 20101007
  20. TEMODAL [Suspect]
     Dosage: 200 MG/M2, QD
     Route: 048
     Dates: start: 20101105, end: 20101109
  21. TEMODAL [Suspect]
     Dosage: 200 MG/M2, QD
     Route: 048
     Dates: start: 20101210, end: 20101214
  22. TEMODAL [Suspect]
     Dosage: 200 MG/M2, QD
     Route: 048
     Dates: start: 20110115, end: 20110119
  23. TEMODAL [Suspect]
     Dosage: 200 MG/M2, QD
     Route: 048
     Dates: start: 20110218, end: 20110222
  24. TEMODAL [Suspect]
     Dosage: 200 MG/M2, QD
     Route: 048
     Dates: start: 20110325, end: 20110329
  25. TEMODAL [Suspect]
     Dosage: 200 MG/M2, QD
     Route: 048
     Dates: start: 20110429, end: 20110503
  26. NAVOBAN [Concomitant]
     Indication: PROPHYLAXIS
     Dosage: DAILY DOSE UNKNOWN
     Route: 048
     Dates: start: 20081214, end: 20110503
  27. MAGMITT [Concomitant]
     Indication: PROPHYLAXIS
     Dosage: DAILY DOSE UNKNOWN
     Route: 048
     Dates: start: 20091214
  28. DEPAKENE [Concomitant]
     Indication: PROPHYLAXIS
     Dosage: DAILY DOSE UNKNOWN
     Route: 048
  29. GASTER D [Concomitant]
     Indication: PROPHYLAXIS
     Dosage: DAILY DOSE UNKNOWN
     Route: 048
     Dates: start: 20081213, end: 20090226
  30. NU-LOTAN [Concomitant]
     Indication: PROPHYLAXIS
     Dosage: DAILY DOSE UNKNOWN
     Route: 048
     Dates: start: 20081212, end: 20090226
  31. PRIMPERAN [Concomitant]
     Indication: PROPHYLAXIS
     Dosage: AS NEEDED ,IT PREPARES FOR THE MEDICATION START OF TEMOZOLOMIDE.
     Route: 048
     Dates: start: 20081212
  32. PRIMPERAN [Concomitant]
     Dosage: DAILY DOSE UNKNOWN
     Route: 048
     Dates: start: 20090123, end: 20090127
  33. MYSLEE [Concomitant]
     Indication: PROPHYLAXIS
     Dosage: DAILY DOSE UNKNOWN
     Route: 048
     Dates: start: 20081227, end: 20090102
  34. NAUZELIN [Concomitant]
     Indication: PROPHYLAXIS
     Dosage: AS NEEDED (IT PREPARES FOR THE MEDICATION START OF TEMOZOLOMIDE.)
     Route: 048
     Dates: start: 20081212

REACTIONS (8)
  - Cerebral ventricle dilatation [Recovering/Resolving]
  - White blood cell count decreased [Recovering/Resolving]
  - Neutrophil count decreased [Recovering/Resolving]
  - Platelet count decreased [Recovering/Resolving]
  - White blood cell count decreased [Recovering/Resolving]
  - Neutrophil count decreased [Recovering/Resolving]
  - Platelet count decreased [Recovering/Resolving]
  - Decreased appetite [Recovering/Resolving]
